FAERS Safety Report 4837846-1 (Version None)
Quarter: 2005Q4

REPORT INFORMATION
  Report Type: 
  Country: None (occurrence: None)
  Receive Date: 20051123
  Receipt Date: 20051123
  Transmission Date: 20060501
  Serious: No
  Sender: FDA-Public Use
  Company Number: None

PATIENT
  Age: 76 Year
  Sex: Male

DRUGS (1)
  1. TAXOL [Suspect]
     Dates: start: 20051118

REACTIONS (2)
  - DEVICE MALFUNCTION [None]
  - PROCEDURAL COMPLICATION [None]
